FAERS Safety Report 21056071 (Version 1)
Quarter: 2022Q3

REPORT INFORMATION
  Report Type: Spontaneous
  Country: TR (occurrence: TR)
  Receive Date: 20220708
  Receipt Date: 20220708
  Transmission Date: 20221026
  Serious: Yes (Other)
  Sender: FDA-Public Use
  Company Number: TR-SUN PHARMACEUTICAL INDUSTRIES LTD-2022RR-343635

PATIENT
  Age: 66 Year
  Sex: Female

DRUGS (3)
  1. IBANDRONIC ACID [Suspect]
     Active Substance: IBANDRONIC ACID
     Indication: Familial mediterranean fever
     Dosage: 150 MILLIGRAM, MONTHLY
     Route: 065
  2. COLCHICINE [Concomitant]
     Active Substance: COLCHICINE
     Indication: Familial mediterranean fever
     Dosage: 2 GRAM, DAILY
     Route: 065
  3. CALCIUM CARBONATE [Concomitant]
     Active Substance: CALCIUM CARBONATE
     Indication: Familial mediterranean fever
     Dosage: 1200 MILLIGRAM, DAILY
     Route: 065

REACTIONS (1)
  - Femoral neck fracture [Unknown]
